FAERS Safety Report 23974170 (Version 1)
Quarter: 2024Q2

REPORT INFORMATION
  Report Type: Spontaneous
  Country: GB (occurrence: GB)
  Receive Date: 20240614
  Receipt Date: 20240614
  Transmission Date: 20240716
  Serious: Yes (Other)
  Sender: FDA-Public Use
  Company Number: None

PATIENT

DRUGS (3)
  1. LAMOTRIGINE [Suspect]
     Active Substance: LAMOTRIGINE
     Indication: Emotional distress
     Dosage: UNK (100X2 INCREASE TO 125X2 DAILY)
     Route: 065
  2. PAROXETINE [Concomitant]
     Active Substance: PAROXETINE
     Dosage: UNK
     Route: 065
  3. CETIRIZINE HYDROCHLORIDE [Concomitant]
     Active Substance: CETIRIZINE HYDROCHLORIDE
     Indication: Histamine level increased
     Dosage: UNK
     Route: 065

REACTIONS (4)
  - Brain fog [Recovered/Resolved]
  - Speech disorder [Recovered/Resolved]
  - Apathy [Recovered/Resolved]
  - Thinking abnormal [Recovered/Resolved]
